FAERS Safety Report 7673323-0 (Version None)
Quarter: 2011Q3

REPORT INFORMATION
  Report Type: 
  Country: None (occurrence: None)
  Receive Date: 20110810
  Receipt Date: 20101028
  Transmission Date: 20111222
  Serious: No
  Sender: FDA-Public Use
  Company Number: US-BAYER-201040880NA

PATIENT
  Sex: Female

DRUGS (4)
  1. PREDNISONE [Concomitant]
  2. PENICILLIN [Concomitant]
     Indication: PNEUMONIA PRIMARY ATYPICAL
  3. MIRENA [Suspect]
     Dosage: 20 ?G/D, CONT
     Route: 015
     Dates: start: 20100828
  4. PENICILLIN [Concomitant]
     Indication: TOOTH INFECTION

REACTIONS (1)
  - VAGINAL DISCHARGE [None]
